FAERS Safety Report 13916460 (Version 1)
Quarter: 2017Q3

REPORT INFORMATION
  Report Type: Spontaneous
  Country: US (occurrence: None)
  Receive Date: 20170827
  Receipt Date: 20170827
  Transmission Date: 20171127
  Serious: No
  Sender: FDA-Public Use
  Company Number: None

PATIENT
  Age: 57 Year
  Sex: Male

DRUGS (1)
  1. CAPECITABINE 500MG ACCORD [Suspect]
     Active Substance: CAPECITABINE
     Indication: PSORIASIS
     Route: 048
     Dates: start: 20170504, end: 20170804

REACTIONS (1)
  - Adverse event [None]

NARRATIVE: CASE EVENT DATE: 20170818
